FAERS Safety Report 17482908 (Version 1)
Quarter: 2020Q1

REPORT INFORMATION
  Report Type: Spontaneous
  Country: US (occurrence: US)
  Receive Date: 20191016
  Receipt Date: 20191016
  Transmission Date: 20200409
  Serious: Yes (Life-Threatening)
  Sender: FDA-Public Use
  Company Number: None

PATIENT
  Age: 33 Year
  Sex: Male

DRUGS (6)
  1. JUUL [DEVICE\NICOTINE] [Suspect]
     Active Substance: DEVICE\NICOTINE
     Dates: start: 201904
  2. TYLENOL [Concomitant]
     Active Substance: ACETAMINOPHEN
  3. XANAX [Concomitant]
     Active Substance: ALPRAZOLAM
  4. EONSMOKE [DEVICE\NICOTINE] [Suspect]
     Active Substance: DEVICE\NICOTINE
  5. MARIJUANA VAPE [Suspect]
     Active Substance: CANNABIS SATIVA SUBSP. INDICA TOP\DEVICE
  6. THC VAPE [Suspect]
     Active Substance: .DELTA.8-TETRAHYDROCANNABINOL\DEVICE\HERBALS

REACTIONS (11)
  - Pyrexia [None]
  - Cough [None]
  - Vomiting [None]
  - Weight decreased [None]
  - Decreased appetite [None]
  - Dyspnoea [None]
  - Nausea [None]
  - Headache [None]
  - Gastrointestinal pain [None]
  - Diarrhoea [None]
  - Abdominal pain [None]
